FAERS Safety Report 6734580-8 (Version None)
Quarter: 2010Q2

REPORT INFORMATION
  Report Type: 
  Country: None (occurrence: None)
  Receive Date: 20100520
  Receipt Date: 20100430
  Transmission Date: 20101027
  Serious: No
  Sender: FDA-Public Use
  Company Number: US-ALLERGAN-1005479US

PATIENT
  Sex: Female

DRUGS (4)
  1. SANCTURA XR [Suspect]
     Indication: HYPERTONIC BLADDER
     Dosage: 60 MG, QAM
     Route: 048
  2. SANCTURA XR [Suspect]
     Dosage: 60 MG, QAM
     Route: 048
     Dates: end: 20100423
  3. PREDNISONE TAB [Concomitant]
     Indication: COLITIS MICROSCOPIC
     Dosage: 2.5 MG, PRN
     Route: 048
  4. VESICARE [Concomitant]
     Indication: HYPERTONIC BLADDER

REACTIONS (1)
  - THERAPEUTIC RESPONSE DECREASED [None]
